FAERS Safety Report 17883998 (Version 1)
Quarter: 2020Q2

REPORT INFORMATION
  Report Type: Spontaneous
  Country: US (occurrence: US)
  Receive Date: 20200610
  Receipt Date: 20200610
  Transmission Date: 20200714
  Serious: Yes (Hospitalization)
  Sender: FDA-Public Use
  Company Number: None

PATIENT
  Sex: Male

DRUGS (1)
  1. AZATHIOPRINE 50MG TAB [Suspect]
     Active Substance: AZATHIOPRINE
     Indication: CHRONIC INFLAMMATORY DEMYELINATING POLYRADICULONEUROPATHY
     Dosage: ?          OTHER DOSE:1-2 TABS; ROUTE; 2WKS - THEN INCREASE?
     Route: 048
     Dates: start: 20200322

REACTIONS (1)
  - Adverse drug reaction [None]
